FAERS Safety Report 8030631-1 (Version None)
Quarter: 2012Q1

REPORT INFORMATION
  Report Type: 
  Country: None (occurrence: None)
  Receive Date: 20120105
  Receipt Date: 20111228
  Transmission Date: 20120608
  Serious: Yes (Hospitalization)
  Sender: FDA-Public Use
  Company Number: USA/USA/12/0022520

PATIENT
  Age: 38 Year
  Sex: Female

DRUGS (3)
  1. VICODIN [Suspect]
     Indication: ABDOMINAL PAIN
     Dosage: OCCASIONALLY USE OF 5/500 TABLET, UNKNOWN
  2. RANITIDINE HCL [Suspect]
     Indication: PRODUCT USED FOR UNKNOWN INDICATION
     Dosage: 150 MG, 1 D, UNKNOWN
  3. HYDROXYCITRIC ACID (HYDROXYCITRIC ACID) [Suspect]
     Indication: PHYTOTHERAPY
     Dosage: 500 MG, 500 MG/D 5 DAYS PER WEEK, UNKNOWN

REACTIONS (4)
  - RENAL FAILURE ACUTE [None]
  - HAEMODIALYSIS [None]
  - HYPERTENSION [None]
  - NEPHROPATHY [None]
